FAERS Safety Report 19369349 (Version 2)
Quarter: 2021Q2

REPORT INFORMATION
  Report Type: Spontaneous
  Country: US (occurrence: US)
  Receive Date: 20210603
  Receipt Date: 20210603
  Transmission Date: 20210717
  Serious: No
  Sender: FDA-Public Use
  Company Number: US-SPECGX-T202002347

PATIENT
  Sex: Female
  Weight: 88 kg

DRUGS (2)
  1. HYDROCODONE/ACETAMINOPHEN [Suspect]
     Active Substance: ACETAMINOPHEN\HYDROCODONE
     Indication: MIGRAINE
     Dosage: UNK, ONE BY MOUTH AND THEN A SECOND ONE FOUR HOURS LATER
     Route: 048
  2. DEMEROL [Concomitant]
     Active Substance: MEPERIDINE HYDROCHLORIDE
     Indication: MIGRAINE
     Dosage: UNK, 50MG USED ABOUT 3?4 TIMES A WEEK
     Route: 065

REACTIONS (3)
  - Weight increased [Recovered/Resolved]
  - Weight decreased [Recovered/Resolved]
  - Drug ineffective [Not Recovered/Not Resolved]

NARRATIVE: CASE EVENT DATE: 2020
